FAERS Safety Report 13821054 (Version 1)
Quarter: 2017Q3

REPORT INFORMATION
  Report Type: Spontaneous
  Country: US (occurrence: US)
  Receive Date: 20170801
  Receipt Date: 20170801
  Transmission Date: 20171127
  Serious: No
  Sender: FDA-Public Use
  Company Number: US-TEVA-739198USA

PATIENT
  Age: 68 Year
  Sex: Female
  Weight: 59 kg

DRUGS (4)
  1. NORTRIPTYLINE [Concomitant]
     Active Substance: NORTRIPTYLINE
     Dosage: 35 MILLIGRAM DAILY;
  2. LORAZEPAM. [Suspect]
     Active Substance: LORAZEPAM
     Indication: INSOMNIA
     Dosage: 1MG Q HS
     Route: 065
     Dates: start: 2003, end: 20170125
  3. METOPROLOL. [Concomitant]
     Active Substance: METOPROLOL
     Dosage: 25 MILLIGRAM DAILY;
  4. DASATINIB [Concomitant]
     Active Substance: DASATINIB
     Dosage: 100 MILLIGRAM DAILY;

REACTIONS (7)
  - Abnormal dreams [Recovered/Resolved]
  - Muscle twitching [Not Recovered/Not Resolved]
  - Muscle spasms [Recovered/Resolved]
  - Insomnia [Recovered/Resolved]
  - Withdrawal syndrome [Unknown]
  - Nausea [Not Recovered/Not Resolved]
  - Product use in unapproved indication [Unknown]

NARRATIVE: CASE EVENT DATE: 20170124
